FAERS Safety Report 10078279 (Version 3)
Quarter: 2014Q4

REPORT INFORMATION
  Report Type: Report from Study
  Country: US (occurrence: US)
  Receive Date: 20140415
  Receipt Date: 20141116
  Transmission Date: 20150528
  Serious: Yes (Other)
  Sender: FDA-Public Use
  Company Number: US-ROCHE-1382883

PATIENT

DRUGS (1)
  1. CAPECITABINE. [Suspect]
     Active Substance: CAPECITABINE
     Indication: COLORECTAL CANCER
     Dosage: 3 CYCLES OF CAPECITABINE, ADMINISTERED FOR THE FIRST 14 DAYS OF A 21-DAY CYCLE.
     Route: 048

REACTIONS (1)
  - Mucosal inflammation [Recovering/Resolving]
